FAERS Safety Report 6188923-7 (Version None)
Quarter: 2009Q2

REPORT INFORMATION
  Report Type: 
  Country: None (occurrence: None)
  Receive Date: 20090513
  Receipt Date: 20090508
  Transmission Date: 20091009
  Serious: Yes (Other)
  Sender: FDA-Public Use
  Company Number: PHHY2009RU17565

PATIENT
  Age: 52 Year
  Sex: Male

DRUGS (1)
  1. ACLASTA [Suspect]
     Dosage: 5 MG, UNK
     Dates: start: 20090430

REACTIONS (5)
  - BLOOD PRESSURE SYSTOLIC INCREASED [None]
  - ORAL HERPES [None]
  - PYREXIA [None]
  - SYNCOPE [None]
  - TACHYCARDIA [None]
